FAERS Safety Report 7954991-2 (Version None)
Quarter: 2011Q4

REPORT INFORMATION
  Report Type: 
  Country: None (occurrence: None)
  Receive Date: 20111129
  Receipt Date: 20111121
  Transmission Date: 20120403
  Serious: Yes (Hospitalization, Other)
  Sender: FDA-Public Use
  Company Number: GER/GER/11/0022040

PATIENT
  Age: 0 Year
  Sex: Male
  Weight: 4.06 kg

DRUGS (3)
  1. LAMOTRIGINE [Suspect]
     Indication: PRODUCT USED FOR UNKNOWN INDICATION
     Dosage: 350 MG, 1 IN 1 D, TRANSPLACENTAL
     Route: 064
  2. FOLSAURE (FOLIC ACID) [Concomitant]
  3. KALIUMJODID (POTASSIUM IODIDE) [Concomitant]

REACTIONS (3)
  - SOMNOLENCE NEONATAL [None]
  - CONGENITAL CEREBRAL CYST [None]
  - MATERNAL DRUGS AFFECTING FOETUS [None]
